FAERS Safety Report 4590273-7 (Version None)
Quarter: 2005Q1

REPORT INFORMATION
  Report Type: 
  Country: None (occurrence: None)
  Receive Date: 20050224
  Receipt Date: 20050114
  Transmission Date: 20050727
  Serious: Yes (Hospitalization)
  Sender: FDA-Public Use
  Company Number: PHHO2005CA01132

PATIENT
  Age: 61 Year
  Sex: Female

DRUGS (7)
  1. ZELNORM [Suspect]
     Indication: IRRITABLE BOWEL SYNDROME
     Dosage: UNK, LEVEL D
     Route: 048
     Dates: start: 20041215, end: 20041219
  2. ARTHROTEC [Suspect]
  3. LUVOX [Concomitant]
  4. LIPITOR [Concomitant]
  5. NEXIUM [Concomitant]
  6. ATACAND [Concomitant]
  7. LECTOPAM TAB [Concomitant]

REACTIONS (4)
  - ABDOMINAL PAIN [None]
  - BARIUM ENEMA [None]
  - DIARRHOEA [None]
  - INTESTINAL OBSTRUCTION [None]
